FAERS Safety Report 5824236-8 (Version None)
Quarter: 2008Q3

REPORT INFORMATION
  Report Type: 
  Country: None (occurrence: None)
  Receive Date: 20080721
  Receipt Date: 20080710
  Transmission Date: 20090109
  Serious: Yes (Other)
  Sender: FDA-Public Use
  Company Number: 082-C5013-08070511

PATIENT
  Age: 69 Year
  Sex: Female

DRUGS (3)
  1. CC-5013 (LENALIDOMIDE)(CAPSULES) [Suspect]
     Indication: MYELODYSPLASTIC SYNDROME
     Dosage: 10 MG, ORAL
     Route: 048
     Dates: start: 20080701
  2. PROLOL ( PROPRANOLOL HYDROCHLORIDE) [Concomitant]
  3. STATINS (CHOLESTEROL- AND TRIGLYCERIDE REDUCERS) [Concomitant]

REACTIONS (1)
  - LOCALISED OEDEMA [None]
